FAERS Safety Report 6490937-4 (Version None)
Quarter: 2009Q4

REPORT INFORMATION
  Report Type: 
  Country: None (occurrence: None)
  Receive Date: 20091211
  Receipt Date: 20090507
  Transmission Date: 20100525
  Serious: No
  Sender: FDA-Public Use
  Company Number: US-TYCO HEALTHCARE/MALLINCKRODT-T200901002

PATIENT
  Sex: Male
  Weight: 106.6 kg

DRUGS (16)
  1. METHYLIN [Suspect]
     Indication: ASTHENIA
     Dosage: 20 MG, BID
     Route: 048
     Dates: start: 20080515, end: 20090420
  2. PROGRAF [Concomitant]
     Indication: LIVER TRANSPLANT
     Dosage: 25 MG, QD
     Route: 048
  3. ISOSORBIDE [Concomitant]
     Dosage: UNK
     Route: 048
  4. METOPROLOL [Concomitant]
     Indication: BLOOD PRESSURE INCREASED
     Dosage: UNK
     Route: 048
  5. FUROSEMIDE [Concomitant]
     Indication: DIURETIC THERAPY
     Dosage: UNK
     Route: 048
  6. SEPTRA [Concomitant]
     Indication: ANTIBIOTIC PROPHYLAXIS
     Dosage: 1 QD
     Route: 048
  7. LOTREL [Concomitant]
     Indication: BLOOD PRESSURE INCREASED
     Dosage: BID
     Route: 048
  8. SIMVASTATIN [Concomitant]
     Indication: BLOOD CHOLESTEROL INCREASED
     Dosage: 80 MG, UNK
     Route: 048
  9. HYDROCODONE BITARTRATE AND ACETAMINOPHEN [Concomitant]
     Indication: PAIN
     Dosage: 1 BID
  10. HUMALOG [Concomitant]
     Indication: DIABETES MELLITUS
     Dosage: SLIDING SCALE
  11. LANTUS [Concomitant]
     Indication: DIABETES MELLITUS
     Dosage: SLIDING SCALE
  12. LEVOTHYROXINE SODIUM [Concomitant]
     Indication: THYROID DISORDER
     Dosage: 150 UG, QD
     Route: 048
  13. CEPHALEXIN [Concomitant]
     Indication: GOUT
     Dosage: 500 MG, UNK
     Route: 048
  14. ASPIRIN [Concomitant]
     Dosage: UNK
  15. MULTIVITAMIN                       /00831701/ [Concomitant]
     Dosage: UNK
  16. FISH OIL [Concomitant]
     Dosage: UNK

REACTIONS (2)
  - OFF LABEL USE [None]
  - SKIN LESION [None]
